FAERS Safety Report 7454305-0 (Version None)
Quarter: 2011Q2

REPORT INFORMATION
  Report Type: 
  Country: None (occurrence: None)
  Receive Date: 20110503
  Receipt Date: 20110330
  Transmission Date: 20111010
  Serious: Yes (Hospitalization)
  Sender: FDA-Public Use
  Company Number: US-BAYER-200942473NA

PATIENT
  Age: 44 Year
  Sex: Female
  Weight: 72 kg

DRUGS (7)
  1. SIMVASTATIN [Concomitant]
  2. FEXOFENADINE [Concomitant]
     Indication: SEASONAL ALLERGY
     Dosage: UNK
     Dates: start: 20060101, end: 20080101
  3. YAZ [Suspect]
     Indication: PREMENSTRUAL SYNDROME
     Dosage: 1 DF (DAILY DOSE), QD, ORAL
     Route: 048
     Dates: start: 20070326, end: 20071201
  4. LOPRESSOR [Concomitant]
  5. VICODIN [Concomitant]
     Dosage: UNK
     Dates: start: 20071122
  6. ZOCOR [Concomitant]
     Indication: BLOOD CHOLESTEROL DECREASED
     Dosage: UNK
     Dates: start: 20070801, end: 20090301
  7. METROPOLOL [Concomitant]
     Indication: PALPITATIONS
     Dosage: UNK
     Dates: start: 20070101, end: 20081201

REACTIONS (5)
  - DEEP VEIN THROMBOSIS [None]
  - BACK PAIN [None]
  - PULMONARY EMBOLISM [None]
  - DYSPNOEA [None]
  - PAIN IN EXTREMITY [None]
